FAERS Safety Report 13662521 (Version 2)
Quarter: 2017Q2

REPORT INFORMATION
  Report Type: Report from Study
  Country: US (occurrence: US)
  Receive Date: 20170617
  Receipt Date: 20170627
  Transmission Date: 20170830
  Serious: Yes (Hospitalization)
  Sender: FDA-Public Use
  Company Number: US-VIFOR (INTERNATIONAL) INC.-VIT-2017-06479

PATIENT
  Age: 63 Year
  Sex: Female

DRUGS (10)
  1. OMEGA-3-ACID ETHYL ESTER [Concomitant]
     Active Substance: OMEGA-3-ACID ETHYL ESTERS
     Dates: start: 20170511
  2. FUROSEMIDE. [Concomitant]
     Active Substance: FUROSEMIDE
     Dates: start: 20170511
  3. METOLAZONE. [Concomitant]
     Active Substance: METOLAZONE
     Dates: start: 20170511
  4. ONDANSETRON [Concomitant]
     Active Substance: ONDANSETRON
     Dates: start: 20170511
  5. CARVEDILOL. [Concomitant]
     Active Substance: CARVEDILOL
     Dates: start: 20170511
  6. SERTRALINE [Concomitant]
     Active Substance: SERTRALINE HYDROCHLORIDE
     Dates: start: 20170511
  7. VELTASSA [Suspect]
     Active Substance: PATIROMER
     Indication: HYPERKALAEMIA
     Route: 048
     Dates: start: 20170516, end: 20170605
  8. LABETALOL [Concomitant]
     Active Substance: LABETALOL\LABETALOL HYDROCHLORIDE
     Dates: start: 20170511
  9. ANASTROZOLE. [Concomitant]
     Active Substance: ANASTROZOLE
     Dates: start: 20170511
  10. CRESTOR [Concomitant]
     Active Substance: ROSUVASTATIN CALCIUM
     Dates: start: 20170511

REACTIONS (2)
  - Fluid retention [Unknown]
  - Dialysis [Not Recovered/Not Resolved]

NARRATIVE: CASE EVENT DATE: 2017
